FAERS Safety Report 17390411 (Version 2)
Quarter: 2020Q1

REPORT INFORMATION
  Report Type: Spontaneous
  Country: US (occurrence: US)
  Receive Date: 20200207
  Receipt Date: 20200207
  Transmission Date: 20200409
  Serious: No
  Sender: FDA-Public Use
  Company Number: US-009507513-2002USA001637

PATIENT
  Age: 5 Year
  Sex: Female

DRUGS (3)
  1. SYLATRON [Suspect]
     Active Substance: PEGINTERFERON ALFA-2B
     Indication: SKIN CANCER
  2. SYLATRON [Suspect]
     Active Substance: PEGINTERFERON ALFA-2B
     Indication: BRAIN NEOPLASM MALIGNANT
     Dosage: 25 MICROGRAM, QW
     Route: 058
     Dates: start: 20190110
  3. SYLATRON [Suspect]
     Active Substance: PEGINTERFERON ALFA-2B
     Indication: BRAIN NEOPLASM MALIGNANT

REACTIONS (3)
  - Product use in unapproved indication [Unknown]
  - Product colour issue [Unknown]
  - Product physical consistency issue [Unknown]

NARRATIVE: CASE EVENT DATE: 20190110
